FAERS Safety Report 4892689-8 (Version None)
Quarter: 2006Q1

REPORT INFORMATION
  Report Type: 
  Country: None (occurrence: None)
  Receive Date: 20060125
  Receipt Date: 20060125
  Transmission Date: 20060701
  Serious: Yes (Hospitalization)
  Sender: FDA-Public Use
  Company Number: None

PATIENT
  Age: 52 Year
  Sex: Female

DRUGS (2)
  1. ETHAMBUTOL HCL [Suspect]
     Indication: MYCOBACTERIUM AVIUM COMPLEX INFECTION
     Dosage: 800MG PO Q DAILY
     Route: 048
     Dates: start: 20050626, end: 20050701
  2. LANSOPRAZOLE [Suspect]
     Indication: DRUG THERAPY
     Dosage: 30 MG PO Q DAILY
     Route: 048
     Dates: start: 20050626, end: 20050701

REACTIONS (1)
  - THROMBOCYTOPENIA [None]
